FAERS Safety Report 5708024-9 (Version None)
Quarter: 2008Q2

REPORT INFORMATION
  Report Type: 
  Country: None (occurrence: None)
  Receive Date: 20080417
  Receipt Date: 20080414
  Transmission Date: 20081010
  Serious: Yes (Other)
  Sender: FDA-Public Use
  Company Number: US-ROCHE-523755

PATIENT
  Age: 65 Year
  Sex: Female

DRUGS (5)
  1. BONIVA [Suspect]
     Indication: OSTEOPOROSIS
     Route: 065
     Dates: start: 20050101, end: 20071231
  2. ZIAC [Concomitant]
  3. ZIAC [Concomitant]
  4. ACIPHEX [Concomitant]
  5. TRAZODONE HCL [Concomitant]
     Indication: SLEEP DISORDER THERAPY

REACTIONS (8)
  - ARTHRALGIA [None]
  - BREAST CANCER RECURRENT [None]
  - CHILLS [None]
  - COSTOCHONDRITIS [None]
  - FEELING HOT [None]
  - HYPERHIDROSIS [None]
  - MUSCULOSKELETAL PAIN [None]
  - PAIN IN EXTREMITY [None]
